FAERS Safety Report 12270096 (Version 1)
Quarter: 2016Q2

REPORT INFORMATION
  Report Type: Spontaneous
  Country: PL (occurrence: PL)
  Receive Date: 20160415
  Receipt Date: 20160415
  Transmission Date: 20160815
  Serious: Yes (Hospitalization)
  Sender: FDA-Public Use
  Company Number: PL-CIPLA LTD.-2016PL03671

PATIENT

DRUGS (4)
  1. L-THYROXINE [Concomitant]
     Active Substance: LEVOTHYROXINE
     Indication: AUTOIMMUNE THYROIDITIS
     Dosage: UNK
     Route: 065
  2. RISPERIDONE. [Suspect]
     Active Substance: RISPERIDONE
     Indication: ANXIETY
  3. DROTAVERINE [Concomitant]
     Active Substance: DROTAVERINE
     Dosage: UNK
     Route: 065
  4. RISPERIDONE. [Suspect]
     Active Substance: RISPERIDONE
     Indication: ANOREXIA NERVOSA
     Dosage: 1 MG, QD
     Route: 065

REACTIONS (4)
  - Mechanical ileus [Recovered/Resolved]
  - Faecaloma [Recovered/Resolved]
  - General physical health deterioration [Recovered/Resolved]
  - Intestinal obstruction [Recovered/Resolved]
